FAERS Safety Report 17220246 (Version 1)
Quarter: 2019Q4

REPORT INFORMATION
  Report Type: Spontaneous
  Country: US (occurrence: US)
  Receive Date: 20191231
  Receipt Date: 20191231
  Transmission Date: 20200122
  Serious: Yes (Death)
  Sender: FDA-Public Use
  Company Number: US-CATALYST PHARMACEUTICALS, INC-2019CAT00699

PATIENT
  Sex: Male
  Weight: 86.17 kg

DRUGS (10)
  1. FINASTERIDE. [Concomitant]
     Active Substance: FINASTERIDE
  2. PANTOPRAZOLE SODIUM. [Concomitant]
     Active Substance: PANTOPRAZOLE SODIUM
  3. ALLOPURINOL. [Concomitant]
     Active Substance: ALLOPURINOL
  4. MIRTAZAPINE. [Concomitant]
     Active Substance: MIRTAZAPINE
  5. OXYBUTYNIN ER [Concomitant]
     Active Substance: OXYBUTYNIN
  6. PREGABALIN. [Concomitant]
     Active Substance: PREGABALIN
  7. ELIQUIS [Concomitant]
     Active Substance: APIXABAN
  8. TAMSULOSIN [Concomitant]
     Active Substance: TAMSULOSIN
  9. LINZESS [Concomitant]
     Active Substance: LINACLOTIDE
  10. FIRDAPSE [Suspect]
     Active Substance: AMIFAMPRIDINE
     Indication: MYASTHENIC SYNDROME
     Dosage: 5 MG, 3X/DAY
     Route: 048
     Dates: start: 20191030

REACTIONS (1)
  - Pancreatic carcinoma [Fatal]
